FAERS Safety Report 20990335 (Version 2)
Quarter: 2022Q2

REPORT INFORMATION
  Report Type: Spontaneous
  Country: GB (occurrence: GB)
  Receive Date: 20220622
  Receipt Date: 20220624
  Transmission Date: 20220721
  Serious: Yes (Hospitalization, Other)
  Sender: FDA-Public Use
  Company Number: GB-ASTELLAS-2022US016867

PATIENT
  Age: 72 Year
  Sex: Male

DRUGS (11)
  1. ALLOPURINOL [Suspect]
     Active Substance: ALLOPURINOL
     Indication: Product used for unknown indication
     Dosage: 100 MILLIGRAM, ONCE A DAY (ONE ONCE DAILY)
     Route: 065
  2. METFORMIN HYDROCHLORIDE [Suspect]
     Active Substance: METFORMIN HYDROCHLORIDE
     Indication: Product used for unknown indication
     Dosage: 500 MILLIGRAM, 3 TIMES A DAY (THRICE DAILY (TAKE ONE THREE TIMES A DAY))
     Route: 065
  3. RAMIPRIL [Suspect]
     Active Substance: RAMIPRIL
     Indication: Product used for unknown indication
     Dosage: 10 MILLIGRAM, ONCE A DAY (TAKE ONE ONCE DAILY)
     Route: 065
  4. SIMVASTATIN [Suspect]
     Active Substance: SIMVASTATIN
     Indication: Product used for unknown indication
     Dosage: 40 MILLIGRAM, ONCE A DAY (ONE AT BEDTIME)
     Route: 065
  5. TAMSULOSIN [Suspect]
     Active Substance: TAMSULOSIN
     Indication: Product used for unknown indication
     Dosage: 400 MICROGRAM, ONCE A DAY (TAKE ONE ONCE DAILY)
     Route: 065
  6. ASPIRIN [Suspect]
     Active Substance: ASPIRIN
     Indication: Product used for unknown indication
     Dosage: 75 MILLIGRAM, ONCE A DAY (TAKE ONE EACH MORNING)
     Route: 065
  7. ATENOLOL [Suspect]
     Active Substance: ATENOLOL
     Indication: Product used for unknown indication
     Dosage: 50 MILLIGRAM (TAKE ONE ONCE DAILY)
     Route: 065
  8. GOSERELIN [Suspect]
     Active Substance: GOSERELIN
     Indication: Product used for unknown indication
     Dosage: 10.8 MILLIGRAM (ONE EVERY 12 WEEKS)
     Route: 065
  9. OMEPRAZOLE [Suspect]
     Active Substance: OMEPRAZOLE
     Indication: Product used for unknown indication
     Dosage: 20 MILLIGRAM, ONCE A DAY (TAKE ONE ONCE DAILY)
     Route: 065
  10. PIOGLITAZONE [Suspect]
     Active Substance: PIOGLITAZONE
     Indication: Product used for unknown indication
     Dosage: 30 MILLIGRAM, ONCE A DAY  (TAKE ONE ONCE DAILY)
     Route: 065
  11. XTANDI [Suspect]
     Active Substance: ENZALUTAMIDE
     Indication: Product used for unknown indication
     Dosage: 160 MILLIGRAM, ONCE A DAY (TAKE FOUR ONE DAILY)
     Route: 065

REACTIONS (6)
  - Malignant spinal cord compression [Recovering/Resolving]
  - Malignant neoplasm progression [Recovering/Resolving]
  - Hypophosphataemia [Unknown]
  - Hypomagnesaemia [Unknown]
  - Erythema [Recovered/Resolved]
  - Pruritus [Recovered/Resolved]
